FAERS Safety Report 13596486 (Version 1)
Quarter: 2017Q2

REPORT INFORMATION
  Report Type: Spontaneous
  Country: US (occurrence: US)
  Receive Date: 20170530
  Receipt Date: 20170530
  Transmission Date: 20170830
  Serious: No
  Sender: FDA-Public Use
  Company Number: None

PATIENT
  Age: 32 Year
  Sex: Male
  Weight: 103.5 kg

DRUGS (5)
  1. BUSPIRONE [Concomitant]
     Active Substance: BUSPIRONE HYDROCHLORIDE
  2. VIVITROL [Suspect]
     Active Substance: NALTREXONE
     Indication: ALCOHOL USE
     Dosage: ?          QUANTITY:1 INJECTION(S);OTHER FREQUENCY:MONTHLY;?
     Route: 030
     Dates: start: 20170426
  3. GABAPENTIN. [Concomitant]
     Active Substance: GABAPENTIN
  4. PAROXETINE. [Concomitant]
     Active Substance: PAROXETINE
  5. BUPROPION. [Concomitant]
     Active Substance: BUPROPION

REACTIONS (4)
  - Injection site pain [None]
  - Pain [None]
  - Injection site nodule [None]
  - Injection site discomfort [None]

NARRATIVE: CASE EVENT DATE: 20170524
